FAERS Safety Report 9392388 (Version 1)
Quarter: 2013Q3

REPORT INFORMATION
  Report Type: Spontaneous
  Country: US (occurrence: US)
  Receive Date: 20130710
  Receipt Date: 20130710
  Transmission Date: 20140515
  Serious: No
  Sender: FDA-Public Use
  Company Number: US-009507513-1306USA008689

PATIENT
  Age: 23 Year
  Sex: Female
  Weight: 115.19 kg

DRUGS (1)
  1. NEXPLANON [Suspect]
     Indication: CONTRACEPTION
     Dosage: 1 ROD
     Route: 059
     Dates: start: 20120711, end: 20130610

REACTIONS (2)
  - Pain in extremity [Recovered/Resolved]
  - Device breakage [Recovered/Resolved]
